FAERS Safety Report 9658814 (Version 2)
Quarter: 2013Q4

REPORT INFORMATION
  Report Type: Spontaneous
  Country: US (occurrence: US)
  Receive Date: 20131030
  Receipt Date: 20131030
  Transmission Date: 20140711
  Serious: No
  Sender: FDA-Public Use
  Company Number: US-PURDUE-USA-2011-0066093

PATIENT
  Age: 55 Year
  Sex: Female

DRUGS (1)
  1. OXYCONTIN (NDA 22-272) [Suspect]
     Indication: PAIN
     Dosage: 80 MG, TID
     Dates: start: 201009

REACTIONS (8)
  - Renal disorder [Unknown]
  - Quality of life decreased [Unknown]
  - Pain in extremity [Unknown]
  - Pain [Unknown]
  - Unevaluable event [Unknown]
  - Drug effect delayed [Unknown]
  - Inadequate analgesia [Unknown]
  - Drug effect decreased [Unknown]
